FAERS Safety Report 17765770 (Version 2)
Quarter: 2020Q2

REPORT INFORMATION
  Report Type: Report from Study
  Country: FR (occurrence: FR)
  Receive Date: 20200511
  Receipt Date: 20200526
  Transmission Date: 20200714
  Serious: Yes (Hospitalization)
  Sender: FDA-Public Use
  Company Number: FR-JNJFOC-20200437967

PATIENT
  Age: 59 Year
  Sex: Male
  Weight: 65 kg

DRUGS (5)
  1. ERDAFITINIB. [Suspect]
     Active Substance: ERDAFITINIB
     Indication: TRANSITIONAL CELL CARCINOMA
     Route: 048
     Dates: start: 20200306, end: 20200319
  2. ERDAFITINIB. [Suspect]
     Active Substance: ERDAFITINIB
     Dosage: DOSE UP-TITRATED PER PROTOCOL; 28-APR-2020 DOSE SKIPPED (AND NOT MADE UP) DUE TO ISCHEMIA
     Route: 048
     Dates: start: 20200320, end: 20200427
  3. KARDEGIC [Concomitant]
     Active Substance: ASPIRIN DL-LYSINE
     Indication: AORTIC ANEURYSM
     Dates: start: 2015
  4. SMECTA [Concomitant]
     Active Substance: MONTMORILLONITE
     Indication: DIARRHOEA
     Dates: start: 202003
  5. KARDEGIC [Concomitant]
     Active Substance: ASPIRIN DL-LYSINE
     Indication: ARTERIAL DISORDER

REACTIONS (1)
  - Ischaemia [Recovering/Resolving]

NARRATIVE: CASE EVENT DATE: 20200422
